FAERS Safety Report 16992645 (Version 1)
Quarter: 2019Q4

REPORT INFORMATION
  Report Type: Spontaneous
  Country: US (occurrence: US)
  Receive Date: 20191105
  Receipt Date: 20191105
  Transmission Date: 20200122
  Serious: No
  Sender: FDA-Public Use
  Company Number: US-LUPIN PHARMACEUTICALS INC.-2018-09082

PATIENT
  Age: 6 Month
  Sex: Male
  Weight: 6.35 kg

DRUGS (1)
  1. CEFTRIAXONE FOR INJECTION USP, 500 MG [Suspect]
     Active Substance: CEFTRIAXONE
     Indication: OTITIS MEDIA ACUTE
     Dosage: UNK UNK, SINGLE, 350 MG IN 4.5 OUNCE
     Route: 030
     Dates: start: 20181219, end: 20181219

REACTIONS (2)
  - Expired product administered [Unknown]
  - No adverse event [Unknown]

NARRATIVE: CASE EVENT DATE: 20181219
